FAERS Safety Report 18592607 (Version 1)
Quarter: 2020Q4

REPORT INFORMATION
  Report Type: Spontaneous
  Country: US (occurrence: US)
  Receive Date: 20201208
  Receipt Date: 20201208
  Transmission Date: 20210114
  Serious: Yes (Other)
  Sender: FDA-Public Use
  Company Number: US-PFIZER INC-2019089336

PATIENT
  Age: 33 Year
  Sex: Female

DRUGS (1)
  1. XELJANZ XR [Suspect]
     Active Substance: TOFACITINIB CITRATE
     Indication: RHEUMATOID ARTHRITIS
     Dosage: UNK

REACTIONS (6)
  - White blood cell count decreased [Unknown]
  - Postural orthostatic tachycardia syndrome [Unknown]
  - Contusion [Unknown]
  - Fatigue [Unknown]
  - Disturbance in attention [Unknown]
  - Rheumatoid arthritis [Unknown]
